FAERS Safety Report 10286070 (Version 4)
Quarter: 2014Q3

REPORT INFORMATION
  Report Type: Spontaneous
  Country: US (occurrence: None)
  Receive Date: 20140703
  Receipt Date: 20140725
  Transmission Date: 20150326
  Serious: Yes (Other)
  Sender: FDA-Public Use
  Company Number: 2014SA085317

PATIENT
  Age: 34 Year
  Sex: Male
  Weight: 77 kg

DRUGS (1)
  1. GOLD BOND ORIGINAL STRENGTH [Suspect]
     Active Substance: MENTHOL\ZINC OXIDE
     Indication: HYPERHIDROSIS
     Dates: start: 20140617

REACTIONS (5)
  - Chemical injury [None]
  - Pruritus [None]
  - Inflammation [None]
  - Rash [None]
  - Burning sensation [None]
